FAERS Safety Report 24328979 (Version 4)
Quarter: 2024Q4

REPORT INFORMATION
  Report Type: Other
  Country: US (occurrence: US)
  Receive Date: 20240917
  Receipt Date: 20241213
  Transmission Date: 20250115
  Serious: Yes (Other)
  Sender: TRAVERE THERAPEUTICS
  Company Number: US-TRAVERE-2024TVT00839

PATIENT
  Sex: Female

DRUGS (1)
  1. FILSPARI [Suspect]
     Active Substance: SPARSENTAN
     Indication: IgA nephropathy
     Route: 048

REACTIONS (7)
  - Injury [Unknown]
  - COVID-19 [Unknown]
  - Weight decreased [Unknown]
  - Urine odour abnormal [None]
  - Cough [Unknown]
  - Asthenia [Unknown]
  - Urinary tract infection [Unknown]
